FAERS Safety Report 14341361 (Version 1)
Quarter: 2018Q1

REPORT INFORMATION
  Report Type: Spontaneous
  Country: US (occurrence: US)
  Receive Date: 20180102
  Receipt Date: 20180102
  Transmission Date: 20180509
  Serious: No
  Sender: FDA-Public Use
  Company Number: US-TEVA-2017-US-833642

PATIENT
  Sex: Female

DRUGS (2)
  1. CONCERTA [Concomitant]
     Active Substance: METHYLPHENIDATE HYDROCHLORIDE
  2. NUVIGIL [Suspect]
     Active Substance: ARMODAFINIL
     Indication: NARCOLEPSY
     Dosage: 250 MILLIGRAM DAILY; 250MG EVERY MORNING

REACTIONS (4)
  - Vomiting [Recovered/Resolved]
  - Product solubility abnormal [Unknown]
  - Drug ineffective [Unknown]
  - Retching [Recovered/Resolved]

NARRATIVE: CASE EVENT DATE: 2017
